FAERS Safety Report 4579124-4 (Version None)
Quarter: 2005Q1

REPORT INFORMATION
  Report Type: 
  Country: None (occurrence: None)
  Receive Date: 20050121
  Receipt Date: 20040415
  Transmission Date: 20050727
  Serious: Yes (Hospitalization)
  Sender: FDA-Public Use
  Company Number: STA-AE-04-MTX-158

PATIENT
  Age: 69 Year
  Sex: Male

DRUGS (5)
  1. METHOTREXATE [Suspect]
     Indication: RHEUMATOID ARTHRITIS
     Dosage: 12.5 MG 1X PER 1 WK, ORAL
     Route: 048
     Dates: start: 20020101
  2. PREDNISONE [Suspect]
     Dosage: 4 MG 1X PER 1 DAY, ORAL
     Route: 048
     Dates: start: 19980401
  3. SULINDAC [Suspect]
     Dosage: 200 MG 1X PER 1 DAY, ORAL
     Route: 048
     Dates: start: 20030806, end: 20030808
  4. REMICADE [Concomitant]
  5. HYDROCODONE W/ACETAMINOPHEN (HYDROCODONE BITARTATE/PARACETAMOL) [Concomitant]

REACTIONS (1)
  - LARGE INTESTINAL ULCER [None]
